FAERS Safety Report 5520055-0 (Version None)
Quarter: 2007Q4

REPORT INFORMATION
  Report Type: 
  Country: None (occurrence: None)
  Receive Date: 20071116
  Receipt Date: 20071106
  Transmission Date: 20080405
  Serious: Yes (Hospitalization)
  Sender: FDA-Public Use
  Company Number: US-AMGEN-US251320

PATIENT
  Sex: Female

DRUGS (6)
  1. ENBREL [Suspect]
     Indication: RHEUMATOID ARTHRITIS
     Route: 058
     Dates: start: 20021206, end: 20061025
  2. PREDNISONE TAB [Suspect]
     Route: 048
     Dates: start: 20061026, end: 20061128
  3. SODIUM PHOSPHATES [Concomitant]
     Route: 065
  4. UNSPECIFIED PAIN MEDICATION [Concomitant]
     Route: 065
  5. IRON [Concomitant]
     Route: 065
  6. MILK OF MAGNESIA [Concomitant]

REACTIONS (3)
  - INTESTINAL PERFORATION [None]
  - PERITONITIS [None]
  - PLEURAL EFFUSION [None]
